FAERS Safety Report 7543558-6 (Version None)
Quarter: 2011Q2

REPORT INFORMATION
  Report Type: 
  Country: None (occurrence: None)
  Receive Date: 20110524
  Receipt Date: 20110124
  Transmission Date: 20111010
  Serious: No
  Sender: FDA-Public Use
  Company Number: 023019

PATIENT
  Sex: Male

DRUGS (1)
  1. CIMZIA [Suspect]
     Indication: CROHN'S DISEASE
     Dosage: (UNKNOWN DOSE SUBCUTANEOUS)
     Route: 058
     Dates: start: 20101027

REACTIONS (5)
  - MALAISE [None]
  - NASOPHARYNGITIS [None]
  - NASAL CONGESTION [None]
  - ASTHENIA [None]
  - DRUG INEFFECTIVE [None]
